FAERS Safety Report 8173241-8 (Version None)
Quarter: 2012Q1

REPORT INFORMATION
  Report Type: 
  Country: None (occurrence: None)
  Receive Date: 20120229
  Receipt Date: 20111118
  Transmission Date: 20120608
  Serious: No
  Sender: FDA-Public Use
  Company Number: US-GLAXOSMITHKLINE-A0956108A

PATIENT
  Sex: Female

DRUGS (1)
  1. IMITREX [Suspect]
     Route: 064

REACTIONS (4)
  - MEMORY IMPAIRMENT [None]
  - LEARNING DISORDER [None]
  - FOETAL EXPOSURE DURING PREGNANCY [None]
  - DISTRACTIBILITY [None]
